FAERS Safety Report 14045792 (Version 2)
Quarter: 2017Q4

REPORT INFORMATION
  Report Type: Spontaneous
  Country: DE (occurrence: DE)
  Receive Date: 20171005
  Receipt Date: 20171012
  Transmission Date: 20180321
  Serious: Yes (Death)
  Sender: FDA-Public Use
  Company Number: DE-PFIZER INC-2017423223

PATIENT
  Age: 59 Year
  Sex: Female

DRUGS (18)
  1. CILASTATIN/IMIPENEM [Suspect]
     Active Substance: CILASTATIN SODIUM\IMIPENEM
     Indication: BACTERIAL INFECTION
  2. CASPOFUNGIN [Suspect]
     Active Substance: CASPOFUNGIN
     Indication: ASPERGILLUS INFECTION
     Dosage: 70 MG, 1X/DAY (DAYS 5-16)
     Route: 042
  3. DEXAMETHASONE. [Concomitant]
     Active Substance: DEXAMETHASONE
     Dosage: 4 MG, 3X/DAY
     Route: 048
  4. VORICONAZOLE. [Suspect]
     Active Substance: VORICONAZOLE
     Indication: PNEUMOCYSTIS JIROVECII INFECTION
     Dosage: 200 MG, 2X/DAY (DAYS 10-16)
     Route: 042
  5. CILASTATIN/IMIPENEM [Suspect]
     Active Substance: CILASTATIN SODIUM\IMIPENEM
     Indication: ANTIBIOTIC THERAPY
     Dosage: 500 MG, 4X/DAY (DAYS 10-16)
     Route: 042
  6. TRIMETHOPRIM SULFAMETHOXAZOLE [Suspect]
     Active Substance: SULFAMETHOXAZOLE\TRIMETHOPRIM
     Indication: ATYPICAL PNEUMONIA
     Dosage: 20 MG TMP/KG PLUS 100 MG SMX/KG THRICE DAILY I.V., DAYS 2-16
     Route: 042
  7. OXYGEN. [Concomitant]
     Active Substance: OXYGEN
     Dosage: UNK (12 L/MIN)
  8. CEFTRIAXONE SODIUM. [Suspect]
     Active Substance: CEFTRIAXONE SODIUM
     Indication: PNEUMOCYSTIS JIROVECII PNEUMONIA
  9. CLARITHROMYCIN. [Suspect]
     Active Substance: CLARITHROMYCIN
     Dosage: 500 MG, 2X/DAY (DAYS 2-3)
     Route: 042
  10. DEXAMETHASONE. [Concomitant]
     Active Substance: DEXAMETHASONE
     Dosage: 2 MG, 3X/DAY
     Route: 048
  11. PIPERACILLIN/TAZOBACTAM [Suspect]
     Active Substance: PIPERACILLIN SODIUM\TAZOBACTAM SODIUM
     Dosage: 4.5 G, 3X/DAY, (DAYS 2-10)
     Route: 042
  12. AMPHOTERICIN B. [Suspect]
     Active Substance: AMPHOTERICIN B
     Indication: ANTIFUNGAL TREATMENT
     Dosage: 200 MG, 1X/DAY (DAYS 14-16)
     Route: 042
  13. CEFTRIAXONE SODIUM. [Suspect]
     Active Substance: CEFTRIAXONE SODIUM
     Indication: ATYPICAL PNEUMONIA
     Dosage: 2000 MG, 2X/DAY (FROM DAY OF ADMISSION)
     Route: 042
  14. CASPOFUNGIN [Suspect]
     Active Substance: CASPOFUNGIN
     Indication: PNEUMOCYSTIS JIROVECII INFECTION
  15. DEXAMETHASONE. [Concomitant]
     Active Substance: DEXAMETHASONE
     Dosage: 8 MG, 3X/DAY
     Route: 048
  16. TRIMETHOPRIM SULFAMETHOXAZOLE [Suspect]
     Active Substance: SULFAMETHOXAZOLE\TRIMETHOPRIM
     Indication: PNEUMOCYSTIS JIROVECII PNEUMONIA
  17. CASPOFUNGIN [Suspect]
     Active Substance: CASPOFUNGIN
     Indication: INFECTION
  18. VORICONAZOLE. [Suspect]
     Active Substance: VORICONAZOLE
     Indication: ASPERGILLUS INFECTION

REACTIONS (1)
  - Drug ineffective [Fatal]
